FAERS Safety Report 9587221 (Version 2)
Quarter: 2013Q4

REPORT INFORMATION
  Report Type: Report from Study
  Country: IN (occurrence: IN)
  Receive Date: 20131003
  Receipt Date: 20131007
  Transmission Date: 20140711
  Serious: Yes (Death, Hospitalization)
  Sender: FDA-Public Use
  Company Number: IN-GLAXOSMITHKLINE-B0926868A

PATIENT
  Age: 55 Year
  Sex: Female

DRUGS (2)
  1. OLMESARTAN MEDOXOMIL [Suspect]
     Indication: HYPERTENSION
     Route: 065
  2. CARZEC [Suspect]
     Indication: HYPERTENSION
     Dosage: 3.125MG PER DAY
     Route: 065

REACTIONS (2)
  - Paralysis [Unknown]
  - Death [Fatal]
